FAERS Safety Report 7474856-2 (Version None)
Quarter: 2011Q2

REPORT INFORMATION
  Report Type: 
  Country: None (occurrence: None)
  Receive Date: 20110512
  Receipt Date: 20110331
  Transmission Date: 20111010
  Serious: Yes (Hospitalization, Other)
  Sender: FDA-Public Use
  Company Number: US-BAYER-201041687NA

PATIENT
  Age: 34 Year
  Sex: Female
  Weight: 67.12 kg

DRUGS (1)
  1. DROSPIRENONE AND ETHINYL ESTRADIOL [Suspect]
     Dosage: UNK
     Dates: start: 20080909, end: 20090713

REACTIONS (6)
  - BLOOD PRESSURE FLUCTUATION [None]
  - HYPOAESTHESIA ORAL [None]
  - CEREBROVASCULAR ACCIDENT [None]
  - HEADACHE [None]
  - EYELID PTOSIS [None]
  - MUSCULAR WEAKNESS [None]
